FAERS Safety Report 4496985-8 (Version None)
Quarter: 2004Q4

REPORT INFORMATION
  Report Type: 
  Country: None (occurrence: None)
  Receive Date: 20040928
  Receipt Date: 20040721
  Transmission Date: 20050328
  Serious: No
  Sender: FDA-Public Use
  Company Number: 04P-163-0268075-00

PATIENT
  Age: 43 Year
  Sex: Female
  Weight: 79.8331 kg

DRUGS (8)
  1. HUMIRA [Suspect]
     Indication: RHEUMATOID ARTHRITIS
     Dosage: 40 MG, 1 IN 2 WK, SUBCUTANEOUS
     Route: 058
     Dates: start: 20040708, end: 20040721
  2. METHOTREXATE [Concomitant]
  3. CINMET [Concomitant]
  4. CONJUGATED ESTROGEN [Concomitant]
  5. FUROSEMIDE [Concomitant]
  6. SALBUTAMOL [Concomitant]
  7. OXYCONTIN [Concomitant]
  8. OXYCODONE HCL [Concomitant]

REACTIONS (1)
  - SINUSITIS [None]
